FAERS Safety Report 10685089 (Version 1)
Quarter: 2014Q4

REPORT INFORMATION
  Report Type: Spontaneous
  Country: US (occurrence: None)
  Receive Date: 20141209
  Receipt Date: 20141209
  Transmission Date: 20150529
  Serious: Yes (Hospitalization)
  Sender: FDA-Public Use
  Company Number: 405473N

PATIENT
  Age: 37 Year
  Sex: Male
  Weight: 61.2 kg

DRUGS (2)
  1. LEVEMIR [Suspect]
     Active Substance: INSULIN DETEMIR
     Indication: TYPE 2 DIABETES MELLITUS
     Dosage: 10 U, QD, SUBCUTANEOUS
     Route: 058
     Dates: start: 2011
  2. NOVOLOG [Suspect]
     Active Substance: INSULIN ASPART
     Indication: TYPE 2 DIABETES MELLITUS
     Dosage: 4 U, TID, SUBCUTANEOUS
     Route: 058
     Dates: start: 2011

REACTIONS (3)
  - Memory impairment [None]
  - Hyperglycaemic unconsciousness [None]
  - Drug dose omission [None]

NARRATIVE: CASE EVENT DATE: 2011
